FAERS Safety Report 8517276-1 (Version None)
Quarter: 2012Q3

REPORT INFORMATION
  Report Type: 
  Country: None (occurrence: None)
  Receive Date: 20120718
  Receipt Date: 20120706
  Transmission Date: 20120928
  Serious: Yes (Hospitalization)
  Sender: FDA-Public Use
  Company Number: FR-VERTEX PHARMACEUTICALS INC.-000000000000000824

PATIENT
  Sex: Male
  Weight: 113 kg

DRUGS (10)
  1. VIRAFERONPEG [Concomitant]
     Indication: HEPATITIS C
     Route: 058
     Dates: start: 20120430, end: 20120509
  2. REBETOL [Concomitant]
     Indication: HEPATITIS C
     Route: 048
     Dates: start: 20120430, end: 20120509
  3. INDAPAMIDE [Concomitant]
     Indication: HYPERTENSION
     Route: 048
     Dates: start: 20110701
  4. IRBESARTAN [Concomitant]
     Indication: HYPERTENSION
     Route: 048
  5. NEXIUM [Concomitant]
     Indication: GASTROOESOPHAGEAL REFLUX DISEASE
     Route: 048
     Dates: start: 20110201
  6. GLUCOPHAGE [Concomitant]
     Indication: DIABETES MELLITUS
     Route: 048
  7. ALLOPURINOL [Concomitant]
     Indication: GOUT
     Route: 048
  8. INCIVO [Suspect]
     Indication: HEPATITIS C
     Dosage: DOSAGE FORM: TABLET
     Route: 065
     Dates: start: 20120430, end: 20120509
  9. LANTUS [Concomitant]
     Indication: DIABETES MELLITUS
     Route: 058
  10. NOVORAPID [Concomitant]
     Indication: DIABETES MELLITUS
     Route: 058

REACTIONS (7)
  - HEADACHE [None]
  - SPEECH DISORDER [None]
  - IRRITABILITY [None]
  - PAIN IN EXTREMITY [None]
  - ABNORMAL BEHAVIOUR [None]
  - DIABETES MELLITUS INADEQUATE CONTROL [None]
  - CONFUSIONAL STATE [None]
